FAERS Safety Report 10745483 (Version 1)
Quarter: 2015Q1

REPORT INFORMATION
  Report Type: Spontaneous
  Country: US (occurrence: US)
  Receive Date: 20150128
  Receipt Date: 20150128
  Transmission Date: 20150721
  Serious: Yes (Other)
  Sender: FDA-Public Use
  Company Number: US-009507513-1501USA007521

PATIENT
  Sex: Female
  Weight: 101 kg

DRUGS (1)
  1. ASMANEX [Suspect]
     Active Substance: MOMETASONE FUROATE
     Dosage: UNK

REACTIONS (4)
  - Anaphylactic shock [Unknown]
  - Blood pressure increased [Unknown]
  - Urticaria [Unknown]
  - Pneumonia [Recovered/Resolved]
